FAERS Safety Report 4598355-0 (Version None)
Quarter: 2005Q1

REPORT INFORMATION
  Report Type: 
  Country: None (occurrence: None)
  Receive Date: 20050304
  Receipt Date: 20050224
  Transmission Date: 20050727
  Serious: Yes (Hospitalization)
  Sender: FDA-Public Use
  Company Number: 200511548US

PATIENT
  Age: 35 Year
  Sex: Male

DRUGS (4)
  1. LOVENOX [Suspect]
     Indication: ANGINA UNSTABLE
     Dosage: DOSE: UNK
  2. ASPIRIN [Concomitant]
     Dosage: DOSE: UNK
  3. LOPRESSOR [Concomitant]
     Dosage: DOSE: UNK
  4. TORADOL [Concomitant]
     Dosage: DOSE: UNK

REACTIONS (2)
  - PARAESTHESIA [None]
  - SPINAL HAEMATOMA [None]
